FAERS Safety Report 20103634 (Version 1)
Quarter: 2021Q4

REPORT INFORMATION
  Report Type: Spontaneous
  Country: US (occurrence: None)
  Receive Date: 20211123
  Receipt Date: 20211123
  Transmission Date: 20220304
  Serious: No
  Sender: FDA-Public Use
  Company Number: None

PATIENT
  Age: 21 Year
  Sex: Female

DRUGS (1)
  1. HUMIRA [Suspect]
     Active Substance: ADALIMUMAB
     Indication: Psoriatic arthropathy
     Dosage: OTHER FREQUENCY : EVERY 2 WEEKS;?
     Route: 058

REACTIONS (5)
  - Ear infection [None]
  - Sepsis [None]
  - Injection site haemorrhage [None]
  - Injection site bruising [None]
  - Injection site swelling [None]
